FAERS Safety Report 5893798-7 (Version None)
Quarter: 2008Q3

REPORT INFORMATION
  Report Type: 
  Country: None (occurrence: None)
  Receive Date: 20080923
  Receipt Date: 20080910
  Transmission Date: 20090109
  Serious: Yes (Hospitalization, Other)
  Sender: FDA-Public Use
  Company Number: TR-ELI_LILLY_AND_COMPANY-TR200801005694

PATIENT
  Age: 65 Year
  Sex: Female
  Weight: 85 kg

DRUGS (6)
  1. HUMALOG [Suspect]
     Indication: DIABETES MELLITUS
     Route: 058
     Dates: start: 20050101
  2. LANTUS [Concomitant]
     Indication: DIABETES MELLITUS
     Dosage: 16 U, DAILY (1/D)
     Route: 058
  3. BELOC /00376903/ [Concomitant]
     Indication: CARDIAC DISORDER
     Dosage: UNK, 2/D
     Route: 048
     Dates: start: 20080101
  4. RILACE PLUS [Concomitant]
     Indication: HYPERTENSION
     Dosage: UNK, EACH MORNING
  5. AMIODARONE HCL [Concomitant]
     Indication: ARRHYTHMIA PROPHYLAXIS
     Dosage: UNK, 2/D
  6. ECOPIRIN [Concomitant]
     Indication: ANTICOAGULANT THERAPY
     Dosage: UNK, DAILY (1/D)

REACTIONS (5)
  - ARRHYTHMIA [None]
  - ARTERIOSCLEROSIS [None]
  - HYPERTENSION [None]
  - SHOCK HYPOGLYCAEMIC [None]
  - VASCULAR GRAFT [None]
